FAERS Safety Report 11544242 (Version 1)
Quarter: 2015Q3

REPORT INFORMATION
  Report Type: Spontaneous
  Country: KR (occurrence: KR)
  Receive Date: 20150924
  Receipt Date: 20150924
  Transmission Date: 20151125
  Serious: Yes (Hospitalization)
  Sender: FDA-Public Use
  Company Number: KR-AMGEN-KORCT2015098493

PATIENT
  Age: 42 Year
  Sex: Female

DRUGS (12)
  1. G-LASTA [Suspect]
     Active Substance: PEGFILGRASTIM
     Indication: FEBRILE NEUTROPENIA
     Dosage: 6 MG, 1X/3WEEKS
     Route: 058
     Dates: start: 20150726
  2. CYCLOPHOSPHAMIDE. [Concomitant]
     Active Substance: CYCLOPHOSPHAMIDE
     Dosage: 695 MG, UNK
     Route: 042
     Dates: start: 20150905, end: 20150905
  3. CYCLOPHOSPHAMIDE. [Concomitant]
     Active Substance: CYCLOPHOSPHAMIDE
     Dosage: 695 MG, UNK
     Route: 042
     Dates: start: 20150725, end: 20150725
  4. CYCLOPHOSPHAMIDE. [Concomitant]
     Active Substance: CYCLOPHOSPHAMIDE
     Dosage: 695 MG, UNK
     Route: 042
     Dates: start: 20150815, end: 20150815
  5. G-LASTA [Suspect]
     Active Substance: PEGFILGRASTIM
     Dosage: 6 MG, 1X/3WEEKS
     Route: 058
     Dates: start: 20150816
  6. DOCETAXEL. [Concomitant]
     Active Substance: DOCETAXEL
     Dosage: 104 MG, UNK
     Route: 042
     Dates: start: 20150725, end: 20150725
  7. DOXORUBICIN [Concomitant]
     Active Substance: DOXORUBICIN
     Dosage: 69 MG, UNK
     Route: 042
     Dates: start: 20150725, end: 20150725
  8. DOXORUBICIN [Concomitant]
     Active Substance: DOXORUBICIN
     Dosage: 69 MG, UNK
     Route: 042
     Dates: start: 20150905, end: 20150905
  9. DOCETAXEL. [Concomitant]
     Active Substance: DOCETAXEL
     Dosage: 104 MG, UNK
     Route: 042
     Dates: start: 20150905, end: 20150905
  10. DOXORUBICIN [Concomitant]
     Active Substance: DOXORUBICIN
     Dosage: 69 MG, UNK
     Route: 042
     Dates: start: 20150815, end: 20150815
  11. DOCETAXEL. [Concomitant]
     Active Substance: DOCETAXEL
     Dosage: 104 MG, UNK
     Route: 042
     Dates: start: 20150815, end: 20150815
  12. G-LASTA [Suspect]
     Active Substance: PEGFILGRASTIM
     Dosage: 6 MG, 1X/3WEEKS
     Route: 058
     Dates: start: 20150906

REACTIONS (1)
  - Neutropenia [Recovered/Resolved]

NARRATIVE: CASE EVENT DATE: 20150911
